FAERS Safety Report 8619341-7 (Version None)
Quarter: 2012Q3

REPORT INFORMATION
  Report Type: 
  Country: None (occurrence: None)
  Receive Date: 20120824
  Receipt Date: 20120819
  Transmission Date: 20120928
  Serious: Yes (Other)
  Sender: FDA-Public Use
  Company Number: US-PFIZER INC-2012202979

PATIENT
  Age: 32 Year
  Sex: Male
  Weight: 104.31 kg

DRUGS (1)
  1. VIAGRA [Suspect]
     Dosage: 300 MG, 1X/DAY
     Route: 048
     Dates: start: 20120819

REACTIONS (5)
  - PENILE SWELLING [None]
  - PENIS DISORDER [None]
  - GENITAL PAIN [None]
  - DRUG ADMINISTRATION ERROR [None]
  - GENITAL SWELLING [None]
